FAERS Safety Report 11475081 (Version 1)
Quarter: 2015Q3

REPORT INFORMATION
  Report Type: Spontaneous
  Country: US (occurrence: None)
  Receive Date: 20150908
  Receipt Date: 20150908
  Transmission Date: 20151125
  Serious: Yes (Other)
  Sender: FDA-Public Use
  Company Number: None

PATIENT
  Age: 71 Year
  Sex: Female
  Weight: 68.04 kg

DRUGS (7)
  1. ELAVIL [Concomitant]
     Active Substance: AMITRIPTYLINE HYDROCHLORIDE
  2. POTASSIUM CHLORIDE. [Concomitant]
     Active Substance: POTASSIUM CHLORIDE
  3. TEKTURNA [Concomitant]
     Active Substance: ALISKIREN HEMIFUMARATE
  4. ENTOCORT EC [Suspect]
     Active Substance: BUDESONIDE
     Indication: COLITIS MICROSCOPIC
     Dosage: }3 YEARS
     Route: 048
  5. NORMODYNE [Concomitant]
     Active Substance: LABETALOL HYDROCHLORIDE
  6. MICARDIS [Concomitant]
     Active Substance: TELMISARTAN
  7. CHLORTHALIDONE. [Concomitant]
     Active Substance: CHLORTHALIDONE

REACTIONS (12)
  - Cough [None]
  - Respiratory symptom [None]
  - Hypertension [None]
  - Mediastinal mass [None]
  - Pericardial cyst [None]
  - Incorrect drug administration duration [None]
  - Acquired diaphragmatic eventration [None]
  - Pericardial effusion [None]
  - Arthritis [None]
  - Oropharyngeal pain [None]
  - Nasal congestion [None]
  - Increased tendency to bruise [None]

NARRATIVE: CASE EVENT DATE: 20150901
